FAERS Safety Report 7355873-X (Version None)
Quarter: 2011Q1

REPORT INFORMATION
  Report Type: 
  Country: None (occurrence: None)
  Receive Date: 20110316
  Receipt Date: 20110309
  Transmission Date: 20110831
  Serious: Yes (Hospitalization)
  Sender: FDA-Public Use
  Company Number: ES-CEPHALON-2011001229

PATIENT
  Sex: Female

DRUGS (1)
  1. BENDAMUSTINE HCL [Suspect]
     Route: 042

REACTIONS (1)
  - LUNG DISORDER [None]
